FAERS Safety Report 10129519 (Version 3)
Quarter: 2014Q2

REPORT INFORMATION
  Report Type: Spontaneous
  Country: US (occurrence: None)
  Receive Date: 20140424
  Receipt Date: 20140611
  Transmission Date: 20141212
  Serious: Yes (Hospitalization, Other)
  Sender: FDA-Public Use
  Company Number: 2014041870

PATIENT
  Age: 8 Year
  Sex: Female

DRUGS (2)
  1. STIMATE [Suspect]
     Indication: FACTOR VIII DEFICIENCY
     Dosage: (0.15 MG, 2008 OR 2009; 2 SPRAYS NASAL)
     Route: 045
     Dates: start: 20140311
  2. ADVATE (FACTOR VIII, RECOMBINANT) [Concomitant]

REACTIONS (6)
  - Migraine [None]
  - Generalised tonic-clonic seizure [None]
  - Crying [None]
  - Haematoma [None]
  - Laceration [None]
  - Fall [None]
